FAERS Safety Report 10639063 (Version 3)
Quarter: 2014Q4

REPORT INFORMATION
  Report Type: Spontaneous
  Country: US (occurrence: US)
  Receive Date: 20141208
  Receipt Date: 20141217
  Transmission Date: 20150529
  Serious: Yes (Hospitalization, Other)
  Sender: FDA-Public Use
  Company Number: US-BAYER-2014-179170

PATIENT
  Age: 73 Year
  Sex: Female
  Weight: 53.52 kg

DRUGS (4)
  1. ALEVE [Suspect]
     Active Substance: NAPROXEN SODIUM
     Indication: ANALGESIC THERAPY
     Dosage: 1 DF, QD
     Route: 048
     Dates: start: 201410
  2. ALEVE [Suspect]
     Active Substance: NAPROXEN SODIUM
     Indication: ANALGESIC THERAPY
     Dosage: 1 DF, QD
     Route: 048
     Dates: start: 201410
  3. SYNTHROID [Concomitant]
     Active Substance: LEVOTHYROXINE SODIUM
  4. ALEVE PM [Suspect]
     Active Substance: DIPHENHYDRAMINE HYDROCHLORIDE\NAPROXEN SODIUM
     Indication: ANALGESIC THERAPY
     Dosage: 1 DF, QD
     Route: 048
     Dates: start: 2014

REACTIONS (12)
  - Dizziness [Recovered/Resolved]
  - Fall [Recovered/Resolved]
  - Incorrect drug administration duration [Unknown]
  - Haemorrhage [Unknown]
  - Faeces discoloured [None]
  - Dizziness [Recovered/Resolved]
  - Flatulence [Recovered/Resolved]
  - Oesophagitis [Recovered/Resolved]
  - Gastrointestinal haemorrhage [Unknown]
  - Mobility decreased [Recovered/Resolved]
  - Gastric ulcer [Unknown]
  - Haemoglobin decreased [Unknown]

NARRATIVE: CASE EVENT DATE: 2014
